FAERS Safety Report 24450827 (Version 1)
Quarter: 2024Q4

REPORT INFORMATION
  Report Type: Spontaneous
  Country: US (occurrence: None)
  Receive Date: 20241017
  Receipt Date: 20241017
  Transmission Date: 20250115
  Serious: Yes (Death)
  Sender: Public
  Company Number: None

PATIENT
  Age: 99 Year
  Sex: Female

DRUGS (6)
  1. PROLIA [Suspect]
     Active Substance: DENOSUMAB
     Indication: Osteoporosis
     Route: 058
     Dates: start: 20220511, end: 20240919
  2. CALCIUM 500 TAB /VIT D [Concomitant]
  3. LASIX TAB 40MG [Concomitant]
  4. METOPROL TAR TAB 25MG [Concomitant]
  5. PREDNISONE [Concomitant]
     Active Substance: PREDNISONE
  6. PRESERVISION CAP AREDS 2 [Concomitant]

REACTIONS (1)
  - Death [None]

NARRATIVE: CASE EVENT DATE: 20240919
